FAERS Safety Report 25712451 (Version 2)
Quarter: 2025Q4

REPORT INFORMATION
  Report Type: Spontaneous
  Country: US (occurrence: US)
  Receive Date: 20250821
  Receipt Date: 20251127
  Transmission Date: 20260118
  Serious: No
  Sender: SANOFI AVENTIS
  Company Number: US-SA-2025SA248879

PATIENT
  Age: 20 Year
  Sex: Female

DRUGS (1)
  1. DUPIXENT [Suspect]
     Active Substance: DUPILUMAB
     Indication: Dermatitis atopic
     Dosage: 300 MG, QOW
     Route: 058

REACTIONS (7)
  - Insomnia [Unknown]
  - Pruritus [Unknown]
  - Skin fissures [Unknown]
  - Madarosis [Unknown]
  - Skin exfoliation [Unknown]
  - Dermatitis [Unknown]
  - Injection site pain [Unknown]
